FAERS Safety Report 7804115 (Version 2)
Quarter: 2013Q1

REPORT INFORMATION
  Report Type: Spontaneous
  Country: US (occurrence: US)
  Receive Date: 20110208
  Receipt Date: 20130205
  Transmission Date: 20140127
  Serious: No
  Sender: FDA-Public Use
  Company Number: US-PFIZER INC-2011024415

PATIENT
  Age: 24 Year
  Sex: Female
  Weight: 52.15 kg

DRUGS (2)
  1. PREPARATION H HYDROCORTISONE [Suspect]
     Indication: HAEMORRHOIDS
     Dosage: UNK, 2X/DAY
     Route: 054
     Dates: start: 201101, end: 20110126
  2. PREPARATION H HEMORRHOIDAL SUPPOSITORIES [Suspect]
     Indication: HAEMORRHOIDS
     Dosage: UNK, 2 TIMES A DAY
     Route: 054
     Dates: start: 201101, end: 20110126

REACTIONS (1)
  - Drug ineffective [Unknown]
